FAERS Safety Report 23602468 (Version 4)
Quarter: 2024Q3

REPORT INFORMATION
  Report Type: Spontaneous
  Country: US (occurrence: US)
  Receive Date: 20240306
  Receipt Date: 20240703
  Transmission Date: 20241016
  Serious: Yes (Hospitalization)
  Sender: PFIZER
  Company Number: US-PFIZER INC-202400056962

PATIENT
  Age: 39 Year
  Sex: Male

DRUGS (3)
  1. OXBRYTA [Suspect]
     Active Substance: VOXELOTOR
     Indication: Blood disorder
     Dosage: 500 MG/3 TABLETS ONCE DAILY/ONCE A DAY IN MORNING
     Route: 048
     Dates: start: 20230710
  2. HYDREA [Concomitant]
     Active Substance: HYDROXYUREA
     Indication: Blood disorder
     Dosage: 1500 MG, 1X/DAY
     Dates: start: 2015
  3. FOLIC ACID [Concomitant]
     Active Substance: FOLIC ACID
     Indication: Blood disorder
     Dosage: 1 MG ONCE A DAY (HAS BEEN TAKING SINCE HE WAS A KID, BEFORE MOVING HERE)

REACTIONS (2)
  - Sickle cell anaemia with crisis [Recovering/Resolving]
  - Insomnia [Recovering/Resolving]

NARRATIVE: CASE EVENT DATE: 20230701
